FAERS Safety Report 5455789-X (Version None)
Quarter: 2007Q3

REPORT INFORMATION
  Report Type: 
  Country: None (occurrence: None)
  Receive Date: 20070918
  Receipt Date: 20070228
  Transmission Date: 20080115
  Serious: No
  Sender: FDA-Public Use
  Company Number: US-ASTRAZENECA-2006UW22728

PATIENT
  Age: 340 Month
  Sex: Female
  Weight: 100 kg

DRUGS (16)
  1. SEROQUEL [Suspect]
     Indication: DEPRESSION
     Route: 048
     Dates: start: 19990401, end: 19990701
  2. SEROQUEL [Suspect]
     Indication: STRESS
     Route: 048
     Dates: start: 19990401, end: 19990701
  3. SEROQUEL [Suspect]
     Route: 048
     Dates: start: 20040701, end: 20041001
  4. SEROQUEL [Suspect]
     Route: 048
     Dates: start: 20040701, end: 20041001
  5. ABILIFY [Concomitant]
  6. GEODON [Concomitant]
     Dates: start: 20020812
  7. HALDOL [Concomitant]
  8. RISPERDAL [Concomitant]
  9. REMERON [Concomitant]
  10. PAXIL [Concomitant]
  11. TRAZODONE HCL [Concomitant]
  12. DEPAKOTE [Concomitant]
  13. LEXAPRO [Concomitant]
  14. HALOPERIDOL [Concomitant]
  15. CYMBALTA [Concomitant]
  16. BENZATROPINE [Concomitant]

REACTIONS (5)
  - AORTIC VALVE INCOMPETENCE [None]
  - BLOOD CHOLESTEROL INCREASED [None]
  - BLOOD TRIGLYCERIDES INCREASED [None]
  - DIABETES MELLITUS [None]
  - SCIATICA [None]
